FAERS Safety Report 21663003 (Version 4)
Quarter: 2022Q4

REPORT INFORMATION
  Report Type: Report from Study
  Country: AU (occurrence: AU)
  Receive Date: 20221130
  Receipt Date: 20221223
  Transmission Date: 20230113
  Serious: Yes (Hospitalization)
  Sender: FDA-Public Use
  Company Number: AU-GLAXOSMITHKLINE-AU2022177968

PATIENT

DRUGS (12)
  1. BELANTAMAB MAFODOTIN [Suspect]
     Active Substance: BELANTAMAB MAFODOTIN
     Indication: Plasma cell myeloma
     Dosage: 2.5 MG/KG, Q6W
     Route: 042
     Dates: start: 20221107
  2. GENTAMICIN [Concomitant]
     Active Substance: GENTAMICIN
     Indication: COVID-19
     Dosage: 420 MG (FREQUENCY = ONCE)
     Route: 042
     Dates: start: 20221127, end: 20221127
  3. PIPERACILLIN AND TAZOBACTAM [Concomitant]
     Active Substance: PIPERACILLIN SODIUM\TAZOBACTAM SODIUM
     Indication: COVID-19
     Dosage: 4.5 G, SINGLE (FREQUENCY = ONCE)
     Route: 042
     Dates: start: 20221127, end: 20221127
  4. ACETAMINOPHEN [Concomitant]
     Active Substance: ACETAMINOPHEN
     Indication: COVID-19
     Dosage: 1 G, SINGLE (FREQUENCY = ONCE)
     Route: 048
     Dates: start: 20221127, end: 20221127
  5. WARFARIN [Concomitant]
     Active Substance: WARFARIN
     Indication: Thrombosis prophylaxis
     Dosage: 2.5 MG, SINGLE (FREQUENCY = ONCE)
     Route: 048
     Dates: start: 20221127, end: 20221127
  6. SODIUM CHLORIDE [Concomitant]
     Active Substance: SODIUM CHLORIDE
     Indication: Dehydration
     Dosage: 500 ML, SINGLE (FREQUENCY = ONCE)
     Route: 042
     Dates: start: 20221127, end: 20221127
  7. SODIUM CHLORIDE [Concomitant]
     Active Substance: SODIUM CHLORIDE
     Dosage: 1000 ML, PRN
     Route: 042
     Dates: start: 20221127, end: 20221127
  8. AMOXICILLIN\CLAVULANIC ACID [Concomitant]
     Active Substance: AMOXICILLIN\CLAVULANIC ACID
     Indication: COVID-19
     Dosage: 1.2 G (FREQUENCY = EVERY 8 HOURS)
     Route: 042
     Dates: start: 20221127, end: 20221129
  9. AMOXICILLIN\CLAVULANIC ACID [Concomitant]
     Active Substance: AMOXICILLIN\CLAVULANIC ACID
     Indication: COVID-19
     Dosage: 1 DF, QOD
     Route: 048
     Dates: start: 20221129, end: 20221203
  10. REMDESIVIR [Concomitant]
     Active Substance: REMDESIVIR
     Indication: COVID-19
     Dosage: 200 MG, SINGLE (FREQUENCY = ONCE)
     Route: 042
     Dates: start: 20221127, end: 20221128
  11. REMDESIVIR [Concomitant]
     Active Substance: REMDESIVIR
     Indication: Coronavirus infection
     Dosage: 100 MG, SINGLE (FREQUENCY = ONCE DAILY)
     Dates: start: 20221127, end: 20221201
  12. DEXAMETHASONE [Concomitant]
     Active Substance: DEXAMETHASONE
     Indication: COVID-19
     Dosage: 6 MG, QD
     Route: 048
     Dates: start: 20221127, end: 20221130

REACTIONS (1)
  - Coronavirus infection [Recovered/Resolved]

NARRATIVE: CASE EVENT DATE: 20221127
